FAERS Safety Report 16784975 (Version 1)
Quarter: 2019Q3

REPORT INFORMATION
  Report Type: Spontaneous
  Country: US (occurrence: US)
  Receive Date: 20190718
  Receipt Date: 20190718
  Transmission Date: 20191005
  Serious: No
  Sender: FDA-Public Use
  Company Number: None

PATIENT
  Age: 66 Year
  Sex: Male

DRUGS (15)
  1. NOVOLOG INJ [Concomitant]
  2. EPLERENONE TAB [Concomitant]
  3. LEVOTHYROXIN [Concomitant]
     Active Substance: LEVOTHYROXINE
  4. AMLODIPINE [Concomitant]
     Active Substance: AMLODIPINE BESYLATE
  5. POT CHLORIDE CAP [Concomitant]
  6. COTELLIC [Suspect]
     Active Substance: COBIMETINIB
     Indication: MALIGNANT MELANOMA
     Dosage: ?          OTHER FREQUENCY:DAILYFOR3WEEKS;?
     Route: 048
     Dates: start: 20190419
  7. TORSEMIDE. [Concomitant]
     Active Substance: TORSEMIDE
  8. ATORVASTATISN [Concomitant]
  9. ZELBORAF [Concomitant]
     Active Substance: VEMURAFENIB
  10. CLONIDINE. [Concomitant]
     Active Substance: CLONIDINE
  11. SERTRALINE [Concomitant]
     Active Substance: SERTRALINE HYDROCHLORIDE
  12. METOPROL SUC TAB [Concomitant]
  13. EPLERENONE. [Concomitant]
     Active Substance: EPLERENONE
  14. RAMIPRIL. [Concomitant]
     Active Substance: RAMIPRIL
  15. PANTOPRAZOLE [Concomitant]
     Active Substance: PANTOPRAZOLE

REACTIONS (2)
  - Therapy cessation [None]
  - Brain operation [None]

NARRATIVE: CASE EVENT DATE: 20190717
